FAERS Safety Report 9501686 (Version 2)
Quarter: 2013Q3

REPORT INFORMATION
  Report Type: Spontaneous
  Country: US (occurrence: US)
  Receive Date: 20130905
  Receipt Date: 20130924
  Transmission Date: 20140515
  Serious: No
  Sender: FDA-Public Use
  Company Number: US-B.I. PHARMACEUTICALS,INC./RIDGEFIELD-2013-BI-27347BP

PATIENT
  Sex: Female

DRUGS (10)
  1. PRADAXA [Suspect]
     Indication: BLOOD DISORDER
     Dosage: 300 MG
     Route: 048
  2. OXYCONTIN [Concomitant]
     Indication: PAIN
     Dosage: 40 MG
     Route: 048
  3. OXYCONTIN [Concomitant]
     Indication: FIBROMYALGIA
  4. OXYCONTIN [Concomitant]
     Indication: MIGRAINE
  5. OXYCONTIN [Concomitant]
     Indication: ARTHRITIS
  6. LEVOTHYROXINE [Concomitant]
     Indication: HYPOTHYROIDISM
     Dosage: 0.125 MG
     Route: 048
  7. BUSPAR [Concomitant]
     Indication: ANXIETY
     Dosage: 30 MG
     Route: 048
  8. FLEXERIL [Concomitant]
     Indication: HYPOTONIA
     Dosage: 30 MG
     Route: 048
  9. CYMBALTA [Concomitant]
     Indication: DEPRESSION
     Dosage: 60 MG
     Route: 048
  10. CYMBALTA [Concomitant]
     Indication: FIBROMYALGIA

REACTIONS (3)
  - Drug screen positive [Not Recovered/Not Resolved]
  - Drug screen positive [Not Recovered/Not Resolved]
  - Cystitis [Recovered/Resolved]
